FAERS Safety Report 12653673 (Version 1)
Quarter: 2016Q3

REPORT INFORMATION
  Report Type: Spontaneous
  Country: US (occurrence: US)
  Receive Date: 20160816
  Receipt Date: 20160816
  Transmission Date: 20161109
  Serious: No
  Sender: FDA-Public Use
  Company Number: US-ASTRAZENECA-2016SE49456

PATIENT
  Sex: Male
  Weight: 97.1 kg

DRUGS (6)
  1. SIMVASTATIN. [Concomitant]
     Active Substance: SIMVASTATIN
     Indication: BLOOD CHOLESTEROL ABNORMAL
     Route: 065
  2. NEXIUM [Suspect]
     Active Substance: ESOMEPRAZOLE MAGNESIUM
     Indication: ULCER
     Route: 048
  3. ASPIRIN. [Concomitant]
     Active Substance: ASPIRIN
     Indication: ANTICACHECTIC THERAPY
     Route: 065
  4. NEXIUM [Suspect]
     Active Substance: ESOMEPRAZOLE MAGNESIUM
     Indication: ULCER
     Route: 048
  5. NEXIUM [Suspect]
     Active Substance: ESOMEPRAZOLE MAGNESIUM
     Indication: ULCER
     Dosage: GENERIC
     Route: 048
  6. DIGESTIVE CARE PROBIOTIC [Concomitant]
     Indication: ILL-DEFINED DISORDER
     Dosage: 1 UNKNOWN DAILY
     Route: 065

REACTIONS (11)
  - Weight decreased [Unknown]
  - Diarrhoea [Unknown]
  - Product use issue [Unknown]
  - Musculoskeletal chest pain [Unknown]
  - Productive cough [Unknown]
  - Drug administered to patient of inappropriate age [Unknown]
  - Fatigue [Unknown]
  - Body height decreased [Unknown]
  - Flatulence [Unknown]
  - Off label use [Unknown]
  - Drug dose omission [Unknown]
